FAERS Safety Report 21628322 (Version 1)
Quarter: 2022Q4

REPORT INFORMATION
  Report Type: Spontaneous
  Country: US (occurrence: US)
  Receive Date: 20221122
  Receipt Date: 20221122
  Transmission Date: 20230113
  Serious: Yes (Hospitalization)
  Sender: FDA-Public Use
  Company Number: US-VIIV HEALTHCARE ULC-US2022AMR171013

PATIENT

DRUGS (4)
  1. JULUCA [Interacting]
     Active Substance: DOLUTEGRAVIR SODIUM\RILPIVIRINE HYDROCHLORIDE
     Indication: Product used for unknown indication
     Dosage: UNK
  2. ENZALUTAMIDE [Interacting]
     Active Substance: ENZALUTAMIDE
     Indication: Product used for unknown indication
     Dosage: 160 MG, QD
     Route: 048
     Dates: start: 201912
  3. BENADRYL [Interacting]
     Active Substance: DIPHENHYDRAMINE HYDROCHLORIDE
     Indication: Product used for unknown indication
     Dosage: UNK
  4. NIFEDIPINE [Interacting]
     Active Substance: NIFEDIPINE
     Indication: Product used for unknown indication
     Dosage: UNK

REACTIONS (2)
  - Adverse reaction [Recovered/Resolved]
  - Drug interaction [Unknown]

NARRATIVE: CASE EVENT DATE: 20220201
